FAERS Safety Report 7189356-7 (Version None)
Quarter: 2010Q4

REPORT INFORMATION
  Report Type: 
  Country: None (occurrence: None)
  Receive Date: 20101222
  Receipt Date: 20100820
  Transmission Date: 20110411
  Serious: Yes (Hospitalization)
  Sender: FDA-Public Use
  Company Number: US-AMGEN-KDL429205

PATIENT

DRUGS (3)
  1. ENBREL [Suspect]
     Indication: RHEUMATOID ARTHRITIS
     Dosage: 50 MG, QWK
     Route: 058
     Dates: start: 20100625
  2. METHOTREXATE [Concomitant]
     Dosage: 20 MG, QWK
     Route: 048
     Dates: start: 20060101
  3. PREDNISONE [Concomitant]
     Dosage: 10 MG, QD
     Route: 048
     Dates: start: 20060901, end: 20100801

REACTIONS (2)
  - DIVERTICULITIS [None]
  - SLUGGISHNESS [None]
